FAERS Safety Report 9834915 (Version 2)
Quarter: 2014Q3

REPORT INFORMATION
  Report Type: Spontaneous
  Country: US (occurrence: US)
  Receive Date: 20140122
  Receipt Date: 20140814
  Transmission Date: 20150326
  Serious: Yes (Hospitalization)
  Sender: FDA-Public Use
  Company Number: US-009507513-1401USA009922

PATIENT
  Sex: Female

DRUGS (1)
  1. NUVARING [Suspect]
     Active Substance: ETHINYL ESTRADIOL\ETONOGESTREL
     Dosage: UNK
     Route: 067
     Dates: start: 20060131

REACTIONS (7)
  - Appendicitis [Unknown]
  - Upper respiratory tract infection [Unknown]
  - Drug level below therapeutic [Unknown]
  - Laparoscopic surgery [Unknown]
  - Incorrect drug administration duration [Unknown]
  - Ligament operation [Unknown]
  - Deep vein thrombosis [Recovered/Resolved]

NARRATIVE: CASE EVENT DATE: 20060612
